FAERS Safety Report 10360763 (Version 4)
Quarter: 2014Q3

REPORT INFORMATION
  Report Type: Spontaneous
  Country: US (occurrence: US)
  Receive Date: 20140804
  Receipt Date: 20140922
  Transmission Date: 20150326
  Serious: Yes (Hospitalization)
  Sender: FDA-Public Use
  Company Number: US-GLAXOSMITHKLINE-A1083020A

PATIENT
  Age: 79 Year
  Sex: Male

DRUGS (21)
  1. ADVAIR HFA [Suspect]
     Active Substance: FLUTICASONE PROPIONATE\SALMETEROL XINAFOATE
     Indication: CHRONIC OBSTRUCTIVE PULMONARY DISEASE
     Dosage: 1PUFF TWICE PER DAY
     Route: 055
     Dates: start: 2006
  2. HYDRALAZINE [Concomitant]
     Active Substance: HYDRALAZINE HYDROCHLORIDE
  3. MAGNESIUM OXIDE. [Concomitant]
     Active Substance: MAGNESIUM OXIDE
  4. FLORASTOR [Concomitant]
     Active Substance: SACCHAROMYCES CEREVISIAE
  5. PANTOPRAZOLE [Concomitant]
     Active Substance: PANTOPRAZOLE SODIUM
  6. SPIRIVA [Suspect]
     Active Substance: TIOTROPIUM BROMIDE MONOHYDRATE
     Indication: CHRONIC OBSTRUCTIVE PULMONARY DISEASE
     Dosage: 1PUFF PER DAY
     Route: 055
     Dates: start: 2006, end: 2012
  7. ANTIBIOTIC [Suspect]
     Active Substance: UNSPECIFIED INGREDIENT
     Indication: PRODUCT USED FOR UNKNOWN INDICATION
     Route: 065
  8. AMLODIPINE BESYLATE. [Concomitant]
     Active Substance: AMLODIPINE BESYLATE
  9. IRON [Concomitant]
     Active Substance: IRON
  10. BLOOD PRESSURE MEDICATION [Concomitant]
     Active Substance: UNSPECIFIED INGREDIENT
  11. OXYGEN. [Concomitant]
     Active Substance: OXYGEN
  12. GLIMEPIRIDE. [Concomitant]
     Active Substance: GLIMEPIRIDE
  13. LANTUS [Concomitant]
     Active Substance: INSULIN GLARGINE
  14. NOVOLOG [Concomitant]
     Active Substance: INSULIN ASPART
  15. JANUMET [Suspect]
     Active Substance: METFORMIN HYDROCHLORIDE\SITAGLIPTIN PHOSPHATE
     Indication: DIABETES MELLITUS
     Route: 048
     Dates: end: 201011
  16. INSULIN [Concomitant]
     Active Substance: INSULIN NOS
  17. VITAMIN D3 [Concomitant]
     Active Substance: CHOLECALCIFEROL
  18. METOPROLOL SUCCINATE. [Concomitant]
     Active Substance: METOPROLOL SUCCINATE
  19. FINASTERIDE. [Concomitant]
     Active Substance: FINASTERIDE
  20. ALBUTEROL NEBULIZER [Concomitant]
     Active Substance: ALBUTEROL
  21. MIRTAZAPINE. [Concomitant]
     Active Substance: MIRTAZAPINE

REACTIONS (8)
  - Lung infection [Recovered/Resolved]
  - Diarrhoea [Recovered/Resolved]
  - Gastrointestinal disorder [Recovered/Resolved]
  - Intestinal resection [Recovered/Resolved]
  - Colostomy [Recovered/Resolved]
  - Pneumonia [Recovered/Resolved]
  - Clostridium difficile colitis [Recovered/Resolved with Sequelae]
  - Lactic acidosis [Recovered/Resolved]

NARRATIVE: CASE EVENT DATE: 2008
